FAERS Safety Report 17360849 (Version 1)
Quarter: 2020Q1

REPORT INFORMATION
  Report Type: Spontaneous
  Country: NL (occurrence: NL)
  Receive Date: 20200203
  Receipt Date: 20200203
  Transmission Date: 20200409
  Serious: Yes (Other)
  Sender: FDA-Public Use
  Company Number: NL-AMERICAN REGENT INC-2020000236

PATIENT
  Sex: Female

DRUGS (1)
  1. FERINJECT [Suspect]
     Active Substance: FERRIC CARBOXYMALTOSE
     Indication: PRODUCT USED FOR UNKNOWN INDICATION
     Dosage: 1000 MILLIGRAM IN AN UNSPECIFIED DILUTION
     Route: 042
     Dates: start: 20200120

REACTIONS (1)
  - Pancytopenia [Unknown]

NARRATIVE: CASE EVENT DATE: 20200122
